FAERS Safety Report 24003578 (Version 4)
Quarter: 2025Q3

REPORT INFORMATION
  Report Type: Report from Study
  Country: CA (occurrence: CA)
  Receive Date: 20240624
  Receipt Date: 20250905
  Transmission Date: 20251020
  Serious: Yes (Other)
  Sender: TAKEDA
  Company Number: CA-TAKEDA-2024TUS060598

PATIENT
  Age: 48 Year
  Sex: Male
  Weight: 78 kg

DRUGS (11)
  1. VEDOLIZUMAB [Suspect]
     Active Substance: VEDOLIZUMAB
     Indication: Colitis ulcerative
     Dosage: 300 MILLIGRAM, Q6WEEKS
     Dates: start: 20240531
  2. VEDOLIZUMAB [Suspect]
     Active Substance: VEDOLIZUMAB
  3. VEDOLIZUMAB [Suspect]
     Active Substance: VEDOLIZUMAB
  4. VEDOLIZUMAB [Suspect]
     Active Substance: VEDOLIZUMAB
  5. ENTOCORT [Concomitant]
     Active Substance: BUDESONIDE
  6. Cortiment [Concomitant]
  7. BUDESONIDE [Concomitant]
     Active Substance: BUDESONIDE
     Indication: Haemorrhoids
  8. BUDESONIDE [Concomitant]
     Active Substance: BUDESONIDE
     Dosage: 3 MILLIGRAM, TID
     Dates: start: 20240823
  9. MESALAMINE [Concomitant]
     Active Substance: MESALAMINE
  10. MESALAMINE [Concomitant]
     Active Substance: MESALAMINE
  11. CEPHALEXIN [Concomitant]
     Active Substance: CEPHALEXIN
     Dosage: UNK UNK, QD

REACTIONS (6)
  - Haematochezia [Recovering/Resolving]
  - Rectal haemorrhage [Unknown]
  - Frequent bowel movements [Unknown]
  - Haemorrhoids [Recovering/Resolving]
  - Fatigue [Unknown]
  - Therapeutic reaction time decreased [Unknown]

NARRATIVE: CASE EVENT DATE: 20240603
